FAERS Safety Report 7597223-X (Version None)
Quarter: 2011Q3

REPORT INFORMATION
  Report Type: 
  Country: None (occurrence: None)
  Receive Date: 20110708
  Receipt Date: 20101013
  Transmission Date: 20111222
  Serious: No
  Sender: FDA-Public Use
  Company Number: US-GLAXOSMITHKLINE-A0886420A

PATIENT
  Age: 58 Year
  Sex: Male

DRUGS (7)
  1. FOSAMAX [Concomitant]
  2. ASPIRIN [Concomitant]
  3. PROVENTIL [Concomitant]
  4. NORCO [Concomitant]
  5. FLOVENT [Suspect]
     Indication: CHRONIC OBSTRUCTIVE PULMONARY DISEASE
     Dosage: 220MCG TWICE PER DAY
     Route: 055
  6. PREVACID [Concomitant]
  7. ATROVENT [Concomitant]

REACTIONS (3)
  - PRODUCT QUALITY ISSUE [None]
  - OSTEOPOROSIS [None]
  - DRUG INEFFECTIVE [None]
